FAERS Safety Report 16228736 (Version 5)
Quarter: 2019Q2

REPORT INFORMATION
  Report Type: Report from Study
  Country: US (occurrence: US)
  Receive Date: 20190423
  Receipt Date: 20190620
  Transmission Date: 20190711
  Serious: Yes (Hospitalization)
  Sender: FDA-Public Use
  Company Number: US-REGENERON PHARMACEUTICALS, INC.-2019-13563

PATIENT

DRUGS (36)
  1. CEMIPLIMAB [Suspect]
     Active Substance: CEMIPLIMAB
     Dosage: 350 MG,EVERY 3 WEEKS UNTIL DISEASE PROGRESSION
     Route: 042
     Dates: start: 20190201, end: 20190201
  2. INO-9012 [Suspect]
     Active Substance: INVESTIGATIONAL PRODUCT
     Dosage: 9MG/1MG: EVERY 3 WEEKS TIMES 4 DOSE, THEN EVERY 9 WEEKS UNTIL DISEASE PROGRESSION
     Route: 030
     Dates: start: 20190114, end: 20190114
  3. RADIOTHERAPY [Concomitant]
     Active Substance: RADIATION THERAPY
     Dosage: UNK
     Dates: start: 20190110, end: 20190118
  4. BACTRIM DS [Concomitant]
     Active Substance: SULFAMETHOXAZOLE\TRIMETHOPRIM
     Indication: ANTIFUNGAL PROPHYLAXIS
     Dosage: 800-160MG - 1 TABLET ON MONDAY, WEDNESDAY AND FRIDAY
     Route: 048
     Dates: start: 20181227, end: 20190109
  5. CEMIPLIMAB [Suspect]
     Active Substance: CEMIPLIMAB
     Indication: GLIOBLASTOMA
     Dosage: 350 MG,EVERY 3 WEEKS UNTIL DISEASE PROGRESSION
     Route: 042
     Dates: start: 20181219, end: 20181219
  6. CEMIPLIMAB [Suspect]
     Active Substance: CEMIPLIMAB
     Dosage: 350 MG,EVERY 3 WEEKS UNTIL DISEASE PROGRESSION
     Route: 042
     Dates: start: 20190517, end: 20190517
  7. INO-9012 [Suspect]
     Active Substance: INVESTIGATIONAL PRODUCT
     Dosage: 9MG/1MG: EVERY 3 WEEKS TIMES 4 DOSE, THEN EVERY 9 WEEKS UNTIL DISEASE PROGRESSION
     Route: 030
     Dates: start: 20190201, end: 20190201
  8. TEMOZOLOMIDE. [Concomitant]
     Active Substance: TEMOZOLOMIDE
     Indication: GLIOBLASTOMA
     Dosage: 75 MG/M2, DAILY AT BEDTIME, DOSE WAS HELD ON 8-JAN-2019 AND 14-JAN-2019
     Route: 048
     Dates: start: 20181227, end: 20190107
  9. ONDANSETRON [Concomitant]
     Active Substance: ONDANSETRON
     Indication: PROPHYLAXIS OF NAUSEA AND VOMITING
     Dosage: 1 TABLET 30-60 MIN PRIOR TO TMZ ADMINISTRATION AND PRN (8 MG)
     Route: 048
     Dates: start: 20181227, end: 20190113
  10. CEMIPLIMAB [Suspect]
     Active Substance: CEMIPLIMAB
     Dosage: 350 MG,EVERY 3 WEEKS UNTIL DISEASE PROGRESSION
     Route: 042
     Dates: start: 20190222, end: 20190222
  11. CEMIPLIMAB [Suspect]
     Active Substance: CEMIPLIMAB
     Dosage: 350 MG,EVERY 3 WEEKS UNTIL DISEASE PROGRESSION
     Route: 042
     Dates: start: 20190607
  12. INO-5401 [Suspect]
     Active Substance: INVESTIGATIONAL PRODUCT
     Dosage: 9MG/1MG: EVERY 3 WEEKS TIMES 4 DOSE, THEN EVERY 9 WEEKS UNTIL DISEASE PROGRESSIONUNK
     Route: 030
     Dates: start: 20190222, end: 20190222
  13. INO-9012 [Suspect]
     Active Substance: INVESTIGATIONAL PRODUCT
     Indication: GLIOBLASTOMA
     Dosage: 9MG/1MG: EVERY 3 WEEKS TIMES 4 DOSE, THEN EVERY 9 WEEKS UNTIL DISEASE PROGRESSION
     Route: 030
     Dates: start: 20181219, end: 20181219
  14. INO-9012 [Suspect]
     Active Substance: INVESTIGATIONAL PRODUCT
     Dosage: 9MG/1MG: EVERY 3 WEEKS TIMES 4 DOSE, THEN EVERY 9 WEEKS UNTIL DISEASE PROGRESSION
     Route: 030
     Dates: start: 20190426
  15. LEVETIRACETAM. [Concomitant]
     Active Substance: LEVETIRACETAM
     Indication: SEIZURE PROPHYLAXIS
     Dosage: 2000 MG (1000 MG,2 IN 1 D)
     Route: 048
     Dates: start: 20181128, end: 20190114
  16. LEVETIRACETAM. [Concomitant]
     Active Substance: LEVETIRACETAM
     Dosage: 1000MG IN AM AND 500MG IN PM
     Route: 048
     Dates: start: 20190115, end: 20190121
  17. INO-5401 [Suspect]
     Active Substance: INVESTIGATIONAL PRODUCT
     Indication: GLIOBLASTOMA
     Dosage: 9MG/1MG: EVERY 3 WEEKS TIMES 4 DOSE, THEN EVERY 9 WEEKS UNTIL DISEASE PROGRESSION
     Route: 030
     Dates: start: 20181219, end: 20181219
  18. LEVETIRACETAM. [Concomitant]
     Active Substance: LEVETIRACETAM
     Dosage: 1000 MG (500 MG,2 IN 1 D)
     Route: 048
     Dates: start: 20190122, end: 20190128
  19. CEMIPLIMAB [Suspect]
     Active Substance: CEMIPLIMAB
     Dosage: 350 MG,EVERY 3 WEEKS UNTIL DISEASE PROGRESSION
     Route: 042
     Dates: start: 20190429, end: 20190429
  20. LEVETIRACETAM. [Concomitant]
     Active Substance: LEVETIRACETAM
     Dosage: 500 MG (250 MG,2 IN 1 D)
     Route: 048
     Dates: start: 20190129
  21. ACETAMINOPHEN. [Concomitant]
     Active Substance: ACETAMINOPHEN
     Indication: PYREXIA
     Dosage: 650 MG, AS NECESSARY
     Route: 048
     Dates: start: 20190103, end: 20190107
  22. INO-5401 [Suspect]
     Active Substance: INVESTIGATIONAL PRODUCT
     Dosage: 9MG/1MG: EVERY 3 WEEKS TIMES 4 DOSE, THEN EVERY 9 WEEKS UNTIL DISEASE PROGRESSION
     Route: 030
     Dates: start: 20190114, end: 20190114
  23. INO-9012 [Suspect]
     Active Substance: INVESTIGATIONAL PRODUCT
     Dosage: 9MG/1MG: EVERY 3 WEEKS TIMES 4 DOSE, THEN EVERY 9 WEEKS UNTIL DISEASE PROGRESSION
     Route: 030
     Dates: start: 20190222, end: 20190222
  24. TEMOZOLOMIDE. [Concomitant]
     Active Substance: TEMOZOLOMIDE
     Dosage: 75 MG/M2, DAILY AT BEDTIME, DOSE WAS HELD ON 8-JAN-2019 AND 14-JAN-2019
     Route: 048
     Dates: start: 20190109, end: 20190113
  25. PANTOPRAZOLE [Concomitant]
     Active Substance: PANTOPRAZOLE
     Indication: GASTROINTESTINAL DISORDER PROPHYLAXIS
     Dosage: 40 MG (40 MG,1 IN 1 D)
     Route: 048
     Dates: start: 20181126, end: 20190109
  26. FAMOTIDINE. [Concomitant]
     Active Substance: FAMOTIDINE
     Indication: GASTROINTESTINAL DISORDER PROPHYLAXIS
     Dosage: 40 MG (20 MG,2 IN 1 D)
     Route: 048
     Dates: start: 20190110, end: 20190131
  27. TEMOZOLOMIDE. [Concomitant]
     Active Substance: TEMOZOLOMIDE
     Dosage: UNK
     Route: 048
     Dates: start: 20190115, end: 20190118
  28. MULTIVITAMIN                       /00097801/ [Concomitant]
     Active Substance: VITAMINS
     Indication: ROUTINE HEALTH MAINTENANCE
     Dosage: (1 IN 1 D)
     Route: 048
     Dates: start: 20190112
  29. KEFLEX [Concomitant]
     Active Substance: CEPHALEXIN
     Indication: URINARY TRACT INFECTION
     Dosage: 1500 MG (500 MG,3 IN 1 D)
     Route: 048
     Dates: start: 20190103, end: 20190108
  30. IBUPROFEN. [Concomitant]
     Active Substance: IBUPROFEN
     Indication: PYREXIA
     Dosage: 600 MG, AS NECESSARY
     Route: 048
     Dates: start: 20190103, end: 20190107
  31. INO-5401 [Suspect]
     Active Substance: INVESTIGATIONAL PRODUCT
     Dosage: 9MG/1MG: EVERY 3 WEEKS TIMES 4 DOSE, THEN EVERY 9 WEEKS UNTIL DISEASE PROGRESSION
     Route: 030
     Dates: start: 20190201, end: 20190201
  32. INO-5401 [Suspect]
     Active Substance: INVESTIGATIONAL PRODUCT
     Dosage: 9MG/1MG: EVERY 3 WEEKS TIMES 4 DOSE, THEN EVERY 9 WEEKS UNTIL DISEASE PROGRESSION
     Route: 030
     Dates: start: 20190426
  33. RADIOTHERAPY [Concomitant]
     Active Substance: RADIATION THERAPY
     Indication: GLIOBLASTOMA
     Dosage: 40 GY IN 15 FRACTIONS - 2.67 GY PER DOSE, DOSE HELD ON 09-JAN-2019
     Dates: start: 20181227, end: 20190108
  34. LACOSAMIDE. [Concomitant]
     Active Substance: LACOSAMIDE
     Indication: SEIZURE PROPHYLAXIS
     Dosage: 200 MG,2 IN 1 D
     Route: 048
     Dates: start: 20181128
  35. PANTOPRAZOLE [Concomitant]
     Active Substance: PANTOPRAZOLE
     Dosage: 40 MG (40 MG,1 IN 1 D)
     Route: 048
     Dates: start: 20190201
  36. ATOVAQUONE. [Concomitant]
     Active Substance: ATOVAQUONE
     Indication: ANTIFUNGAL PROPHYLAXIS
     Dosage: 10 ML (10 ML,1 IN 1 D)
     Route: 048
     Dates: start: 20190114

REACTIONS (6)
  - Autoimmune nephritis [Recovered/Resolved]
  - Autoimmune nephritis [Recovered/Resolved]
  - Immune-mediated hepatitis [Recovered/Resolved]
  - Immune-mediated hepatitis [Recovered/Resolved]
  - Autoimmune nephritis [Recovering/Resolving]
  - Pyrexia [Recovered/Resolved]

NARRATIVE: CASE EVENT DATE: 20190108
